FAERS Safety Report 12987025 (Version 2)
Quarter: 2016Q4

REPORT INFORMATION
  Report Type: Spontaneous
  Country: JP (occurrence: JP)
  Receive Date: 20161130
  Receipt Date: 20161213
  Transmission Date: 20170207
  Serious: Yes (Other)
  Sender: FDA-Public Use
  Company Number: JP-JNJFOC-20161127453

PATIENT

DRUGS (1)
  1. CANAGLU [Suspect]
     Active Substance: CANAGLIFLOZIN
     Indication: TYPE 2 DIABETES MELLITUS
     Route: 065
     Dates: start: 20140903, end: 20141202

REACTIONS (66)
  - Vaginal infection [Unknown]
  - Dysphonia [Unknown]
  - Tongue disorder [Unknown]
  - Back pain [Unknown]
  - Polyuria [Unknown]
  - Asthenia [Unknown]
  - Fatigue [Unknown]
  - Alopecia [Unknown]
  - Erythema [Unknown]
  - Vulvovaginal pruritus [Unknown]
  - Breast disorder [Unknown]
  - Nausea [Unknown]
  - Decreased appetite [Unknown]
  - Gastrooesophageal reflux disease [Unknown]
  - Muscular weakness [Unknown]
  - Malaise [Unknown]
  - Pain [Unknown]
  - Orthostatic hypotension [Unknown]
  - Rash [Unknown]
  - Cystitis [Unknown]
  - Pruritus [Unknown]
  - Dehydration [Unknown]
  - Flatulence [Unknown]
  - Vulvovaginal pain [Unknown]
  - Urine output increased [Unknown]
  - Renal impairment [Unknown]
  - Loss of consciousness [Unknown]
  - Dizziness [Unknown]
  - Rash macular [Unknown]
  - Eczema [Unknown]
  - Vulvitis [Unknown]
  - Headache [Unknown]
  - Vision blurred [Unknown]
  - Haemorrhoids [Unknown]
  - Drug eruption [Unknown]
  - Muscle spasms [Unknown]
  - Nocturia [Unknown]
  - Urinary incontinence [Unknown]
  - Pruritus genital [Unknown]
  - Hunger [Unknown]
  - Retinal detachment [Unknown]
  - Hypoglycaemia [Unknown]
  - Cataract [Unknown]
  - Dermatitis [Unknown]
  - Dry mouth [Unknown]
  - Cerebral infarction [Unknown]
  - Diarrhoea [Unknown]
  - Pollakiuria [Unknown]
  - Astigmatism [Unknown]
  - Peripheral coldness [Unknown]
  - Hepatobiliary disease [Unknown]
  - Blood pressure increased [Unknown]
  - Haematocrit decreased [Unknown]
  - Blood glucose increased [Unknown]
  - Weight decreased [Unknown]
  - Thirst [Unknown]
  - Urinary tract infection [Unknown]
  - Retinal haemorrhage [Unknown]
  - Angular cheilitis [Unknown]
  - Urethritis [Unknown]
  - Carpal tunnel syndrome [Unknown]
  - Tachycardia [Unknown]
  - Abdominal discomfort [Unknown]
  - Hepatic function abnormal [Unknown]
  - Specific gravity urine abnormal [Unknown]
  - Constipation [Unknown]
